FAERS Safety Report 12343125 (Version 1)
Quarter: 2016Q2

REPORT INFORMATION
  Report Type: Spontaneous
  Country: FR (occurrence: FR)
  Receive Date: 20160506
  Receipt Date: 20160506
  Transmission Date: 20160815
  Serious: Yes (Hospitalization)
  Sender: FDA-Public Use
  Company Number: FR-009507513-1605FRA000576

PATIENT
  Sex: Female

DRUGS (2)
  1. INEGY [Suspect]
     Active Substance: EZETIMIBE\SIMVASTATIN
     Dosage: 10 MG, QD
     Route: 048
  2. PREVISCAN [Interacting]
     Active Substance: FLUINDIONE
     Indication: VENTRICULAR FLUTTER
     Dosage: 30 MG, QD
     Route: 048
     Dates: end: 20160318

REACTIONS (2)
  - Drug interaction [Unknown]
  - Haemorrhagic stroke [Recovered/Resolved with Sequelae]
